FAERS Safety Report 6998291-6 (Version None)
Quarter: 2010Q3

REPORT INFORMATION
  Report Type: 
  Country: None (occurrence: None)
  Receive Date: 20100920
  Receipt Date: 20091229
  Transmission Date: 20110219
  Serious: No
  Sender: FDA-Public Use
  Company Number: US-ASTRAZENECA-2009SE33852

PATIENT
  Age: 781 Month
  Sex: Female
  Weight: 63.5 kg

DRUGS (1)
  1. SEROQUEL [Suspect]
     Indication: BIPOLAR DISORDER
     Route: 048
     Dates: start: 20040101

REACTIONS (9)
  - AGITATION [None]
  - BACK PAIN [None]
  - BLOOD PRESSURE INCREASED [None]
  - DYSPEPSIA [None]
  - DYSPHONIA [None]
  - FALL [None]
  - HYPOAESTHESIA [None]
  - TACHYCARDIA [None]
  - WEIGHT INCREASED [None]
